FAERS Safety Report 7504185-X (Version None)
Quarter: 2011Q2

REPORT INFORMATION
  Report Type: 
  Country: None (occurrence: None)
  Receive Date: 20110525
  Receipt Date: 20110513
  Transmission Date: 20111010
  Serious: Yes (Other)
  Sender: FDA-Public Use
  Company Number: PHHY2011US40972

PATIENT
  Sex: Female

DRUGS (2)
  1. FEMARA [Suspect]
     Indication: NEOPLASM MALIGNANT
     Dosage: 2.5 MG, QD
  2. RADIATION [Concomitant]

REACTIONS (5)
  - JOINT SWELLING [None]
  - ASTHENIA [None]
  - FALL [None]
  - HYPERTENSION [None]
  - OEDEMA PERIPHERAL [None]
